FAERS Safety Report 18351706 (Version 2)
Quarter: 2020Q4

REPORT INFORMATION
  Report Type: Spontaneous
  Country: SE (occurrence: SE)
  Receive Date: 20201007
  Receipt Date: 20201014
  Transmission Date: 20210114
  Serious: Yes (Life-Threatening, Hospitalization, Other)
  Sender: FDA-Public Use
  Company Number: SE-JNJFOC-20200216294

PATIENT
  Age: 42 Year
  Sex: Female

DRUGS (2)
  1. IMODIUM [Suspect]
     Active Substance: LOPERAMIDE HYDROCHLORIDE
     Indication: PRODUCT USED FOR UNKNOWN INDICATION
     Dosage: 48160 TABLETS OF 2 MG (96320 MG) PER DAY
     Route: 048
  2. DIMOR [Suspect]
     Active Substance: LOPERAMIDE
     Indication: PRODUCT USED FOR UNKNOWN INDICATION
     Dosage: 48-160 TABLETS OF 2 MG (96-320 MG) PER DAY OR AT LEAST EVERY THIRD DAY FOR }1 YEAR
     Route: 048

REACTIONS (10)
  - Loss of consciousness [Recovered/Resolved]
  - Pulse absent [Recovered/Resolved]
  - Intentional overdose [Recovered/Resolved]
  - Electrocardiogram QT prolonged [Recovered/Resolved]
  - Intentional product misuse [Recovered/Resolved]
  - Drug dependence [Recovered/Resolved]
  - Torsade de pointes [Recovered/Resolved]
  - Electrocardiogram QRS complex prolonged [Recovered/Resolved]
  - Heart rate irregular [Recovered/Resolved]
  - Drug abuse [Recovered/Resolved]
